FAERS Safety Report 9847554 (Version 2)
Quarter: 2014Q2

REPORT INFORMATION
  Report Type: Report from Study
  Country: DE (occurrence: DE)
  Receive Date: 20140128
  Receipt Date: 20140416
  Transmission Date: 20141212
  Serious: Yes (Hospitalization)
  Sender: FDA-Public Use
  Company Number: DE-ROCHE-1338261

PATIENT
  Age: 65 Year
  Sex: Male

DRUGS (17)
  1. RITUXIMAB [Suspect]
     Indication: RHEUMATOID ARTHRITIS
     Route: 042
     Dates: start: 20120730
  2. TOCILIZUMAB [Suspect]
     Indication: RHEUMATOID ARTHRITIS
     Dosage: START DATE:/NOV/2013
     Route: 065
  3. HYDROXYCHLOROQUINE [Concomitant]
     Indication: RHEUMATOID ARTHRITIS
     Route: 065
  4. HYDROXYCHLOROQUINE [Concomitant]
     Indication: RHEUMATOID ARTHRITIS
     Route: 065
  5. DECORTIN [Concomitant]
  6. ALLOPURINOL [Concomitant]
     Route: 065
  7. METAMIZOL [Concomitant]
  8. SALAGEN [Concomitant]
  9. SIFROL [Concomitant]
  10. MIRTAZAPIN [Concomitant]
  11. FENTANYL [Concomitant]
  12. NEXIUM [Concomitant]
  13. BISOPROLOL [Concomitant]
  14. TORASEMID [Concomitant]
  15. VALSARTAN [Concomitant]
  16. MARCUMAR [Concomitant]
     Route: 065
  17. MITOMYCIN [Concomitant]

REACTIONS (2)
  - Neuromyopathy [Not Recovered/Not Resolved]
  - Myositis [Not Recovered/Not Resolved]
